FAERS Safety Report 11218334 (Version 3)
Quarter: 2015Q4

REPORT INFORMATION
  Report Type: Spontaneous
  Country: US (occurrence: US)
  Receive Date: 20150625
  Receipt Date: 20151022
  Transmission Date: 20160304
  Serious: No
  Sender: FDA-Public Use
  Company Number: US-B.I. PHARMACEUTICALS,INC./RIDGEFIELD-2015-BI-32195BP

PATIENT
  Age: 63 Year
  Sex: Female
  Weight: 57 kg

DRUGS (1)
  1. SPIRIVA [Suspect]
     Active Substance: TIOTROPIUM BROMIDE MONOHYDRATE
     Indication: ASTHMA
     Dosage: 2.5 MCG
     Route: 055
     Dates: start: 201504

REACTIONS (4)
  - Burning sensation [Recovered/Resolved]
  - Erythema [Recovered/Resolved]
  - Product quality issue [Unknown]
  - Off label use [Unknown]

NARRATIVE: CASE EVENT DATE: 201504
